FAERS Safety Report 9927960 (Version 1)
Quarter: 2014Q1

REPORT INFORMATION
  Report Type: Spontaneous
  Country: US (occurrence: US)
  Receive Date: 20140227
  Receipt Date: 20140227
  Transmission Date: 20141002
  Serious: No
  Sender: FDA-Public Use
  Company Number: US-PFIZER INC-2014052669

PATIENT
  Age: 62 Year
  Sex: Female
  Weight: 81.6 kg

DRUGS (1)
  1. LEVOXYL [Suspect]
     Indication: HYPOTHYROIDISM
     Dosage: UNK
     Dates: end: 201303

REACTIONS (5)
  - Agitation [Unknown]
  - Psychomotor hyperactivity [Unknown]
  - Feeling jittery [Unknown]
  - Malaise [Unknown]
  - Alopecia [Unknown]
